FAERS Safety Report 9817604 (Version 1)
Quarter: 2013Q4

REPORT INFORMATION
  Report Type: Spontaneous
  Country: US (occurrence: None)
  Receive Date: 20131223
  Receipt Date: 20131223
  Transmission Date: 20140711
  Serious: Yes (Other)
  Sender: FDA-Public Use
  Company Number: 219221

PATIENT
  Sex: Female

DRUGS (1)
  1. PICATO [Suspect]
     Indication: ACTINIC KERATOSIS
     Dosage: (1 IN 1 D), TOPICAL
     Route: 061
     Dates: start: 20120922

REACTIONS (5)
  - Burning sensation [None]
  - Blister [None]
  - Drug administered at inappropriate site [None]
  - Incorrect drug administration duration [None]
  - Incorrect drug administration duration [None]
